FAERS Safety Report 8031041 (Version 2)
Quarter: 2014Q4

REPORT INFORMATION
  Report Type: Spontaneous
  Country: US (occurrence: US)
  Receive Date: 20110712
  Receipt Date: 20141117
  Transmission Date: 20150529
  Serious: Yes (Hospitalization, Other)
  Sender: FDA-Public Use
  Company Number: US-GLAXOSMITHKLINE-B0732179A

PATIENT
  Sex: Female

DRUGS (1)
  1. AVANDIA [Suspect]
     Active Substance: ROSIGLITAZONE MALEATE
     Indication: DIABETES MELLITUS
     Dosage: 8 MG, 1D
     Route: 048
     Dates: start: 20001005, end: 20070525

REACTIONS (9)
  - Myocardial infarction [Not Recovered/Not Resolved]
  - Pneumothorax [Unknown]
  - Cardiac failure congestive [Unknown]
  - Pulmonary oedema [Unknown]
  - Thoracostomy [Unknown]
  - Fracture [Unknown]
  - Pleural effusion [Unknown]
  - Coronary artery disease [Unknown]
  - Cardiac disorder [Unknown]
